FAERS Safety Report 12178217 (Version 1)
Quarter: 2016Q1

REPORT INFORMATION
  Report Type: Spontaneous
  Country: US (occurrence: US)
  Receive Date: 20160314
  Receipt Date: 20160314
  Transmission Date: 20160526
  Serious: No
  Sender: FDA-Public Use
  Company Number: US-SA-2015SA204390

PATIENT
  Age: 62 Year
  Sex: Male

DRUGS (5)
  1. TOUJEO [Suspect]
     Active Substance: INSULIN GLARGINE
     Indication: TYPE 2 DIABETES MELLITUS
     Dosage: DOSE:35 UNIT(S)
     Route: 065
     Dates: start: 2015, end: 2015
  2. SOLOSTAR [Concomitant]
     Active Substance: DEVICE
     Dates: start: 2015
  3. TOUJEO [Suspect]
     Active Substance: INSULIN GLARGINE
     Indication: TYPE 2 DIABETES MELLITUS
     Dosage: DOSE:35 UNIT(S)
     Route: 065
     Dates: start: 2015
  4. GLUCOPHAGE [Concomitant]
     Active Substance: METFORMIN HYDROCHLORIDE
  5. LANTUS [Concomitant]
     Active Substance: INSULIN GLARGINE
     Dosage: START DATE: 5-10 YEARS AGO DOSE:35 UNIT(S)

REACTIONS (2)
  - Blood glucose increased [Unknown]
  - Drug dose omission [Unknown]

NARRATIVE: CASE EVENT DATE: 20151130
